FAERS Safety Report 4507454-0 (Version None)
Quarter: 2004Q4

REPORT INFORMATION
  Report Type: 
  Country: None (occurrence: None)
  Receive Date: 20041118
  Receipt Date: 20041102
  Transmission Date: 20050328
  Serious: Yes (Hospitalization)
  Sender: FDA-Public Use
  Company Number: 200409922

PATIENT
  Age: 56 Year
  Sex: Male

DRUGS (1)
  1. RESTASIS [Suspect]

REACTIONS (1)
  - ATRIAL FIBRILLATION [None]
